FAERS Safety Report 6650728-8 (Version None)
Quarter: 2010Q1

REPORT INFORMATION
  Report Type: 
  Country: None (occurrence: None)
  Receive Date: 20100325
  Receipt Date: 20100310
  Transmission Date: 20100710
  Serious: No
  Sender: FDA-Public Use
  Company Number: US-BIOGENIDEC-2007BI027043

PATIENT
  Age: 39 Year
  Sex: Female

DRUGS (2)
  1. TYSABRI [Suspect]
     Indication: MULTIPLE SCLEROSIS
     Route: 042
     Dates: start: 20071127
  2. BACLOFEN [Concomitant]
     Indication: MUSCULOSKELETAL STIFFNESS

REACTIONS (7)
  - BALANCE DISORDER [None]
  - FALL [None]
  - FATIGUE [None]
  - GASTROENTERITIS VIRAL [None]
  - PYREXIA [None]
  - TRICHORRHEXIS [None]
  - VOMITING [None]
